FAERS Safety Report 11758166 (Version 3)
Quarter: 2016Q1

REPORT INFORMATION
  Report Type: Spontaneous
  Country: RU (occurrence: RU)
  Receive Date: 20151120
  Receipt Date: 20160129
  Transmission Date: 20160525
  Serious: Yes (Death, Other)
  Sender: FDA-Public Use
  Company Number: RU-ABBVIE-15P-251-1501743-00

PATIENT
  Age: 69 Year
  Sex: Female

DRUGS (4)
  1. RIBAVIRIN. [Concomitant]
     Active Substance: RIBAVIRIN
     Indication: CHRONIC HEPATITIS C
     Route: 048
     Dates: start: 20151001
  2. VIEKIRA PAK [Suspect]
     Active Substance: DASABUVIR\OMBITASVIR\PARITAPREVIR\RITONAVIR
     Indication: CHRONIC HEPATITIS C
     Dosage: (12.5 MG/75 MG/50 MG) 2 TABLETS QD; DASABUVIR 1 TABLET (250 MG) BID
     Route: 048
     Dates: start: 20151001
  3. VIEKIRA PAK [Suspect]
     Active Substance: DASABUVIR\OMBITASVIR\PARITAPREVIR\RITONAVIR
     Indication: HEPATIC CIRRHOSIS
  4. RIBAVIRIN. [Concomitant]
     Active Substance: RIBAVIRIN
     Indication: HEPATIC CIRRHOSIS

REACTIONS (3)
  - Death [Fatal]
  - Abnormal behaviour [Unknown]
  - Encephalopathy [Unknown]

NARRATIVE: CASE EVENT DATE: 20151101
